FAERS Safety Report 25764280 (Version 1)
Quarter: 2025Q3

REPORT INFORMATION
  Report Type: Spontaneous
  Country: US (occurrence: US)
  Receive Date: 20250905
  Receipt Date: 20250905
  Transmission Date: 20251021
  Serious: No
  Sender: DOMPE FARMACEUTICI
  Company Number: US-FARMAPROD-202412-4318

PATIENT
  Sex: Female

DRUGS (22)
  1. OXERVATE [Suspect]
     Active Substance: CENEGERMIN-BKBJ
     Indication: Neurotrophic keratopathy
     Route: 047
     Dates: start: 20241219
  2. TYRVAYA [Concomitant]
     Active Substance: VARENICLINE TARTRATE
  3. FML [Concomitant]
     Active Substance: FLUOROMETHOLONE
  4. RESTASIS [Concomitant]
     Active Substance: CYCLOSPORINE
  5. VITAMINS [Concomitant]
     Active Substance: VITAMINS
  6. FISH OIL [Concomitant]
     Active Substance: FISH OIL
  7. HERBALS\TURMERIC [Concomitant]
     Active Substance: HERBALS\TURMERIC
  8. ZINC [Concomitant]
     Active Substance: ZINC
  9. VITAMIN C [Concomitant]
     Active Substance: ASCORBIC ACID
  10. VITAMIN B COMPLEX [Concomitant]
     Active Substance: CYANOCOBALAMIN\DEXPANTHENOL\NIACINAMIDE\PYRIDOXINE HYDROCHLORIDE\RIBOFLAVIN 5^-PHOSPHATE SODIUM\THIA
  11. DIETARY SUPPLEMENT\HERBALS\MILK THISTLE [Concomitant]
     Active Substance: MILK THISTLE
  12. NAC [Concomitant]
  13. METOPROLOL SUCCINATE [Concomitant]
     Active Substance: METOPROLOL SUCCINATE
  14. HYPOCHLOROUS ACID [Concomitant]
     Active Substance: HYPOCHLOROUS ACID
  15. HYLO NIGHT DRY EYE [Concomitant]
  16. AUTOLOGOUS HUMAN CORNEAL EPITHELIAL CELLS [Concomitant]
     Active Substance: AUTOLOGOUS HUMAN CORNEAL EPITHELIAL CELLS
  17. BLINK NUTRITEARS SOFTGELS [Concomitant]
  18. DIMETHYL SULFONE [Concomitant]
     Active Substance: DIMETHYL SULFONE
  19. B-3 [Concomitant]
  20. GABA [Concomitant]
     Active Substance: HOMEOPATHICS
  21. INTESTA-ZYME [Concomitant]
  22. BA-CO-FLOR [Concomitant]

REACTIONS (5)
  - Eye pain [Unknown]
  - Photophobia [Unknown]
  - Eye swelling [Unknown]
  - Vision blurred [Unknown]
  - Influenza [Unknown]
